FAERS Safety Report 8848283 (Version 1)
Quarter: 2012Q4

REPORT INFORMATION
  Report Type: 
  Country: FR (occurrence: FR)
  Receive Date: 20121018
  Receipt Date: 20121018
  Transmission Date: 20130627
  Serious: Yes (Other)
  Sender: FDA-Public Use
  Company Number: FR-UCBSA-068935

PATIENT

DRUGS (3)
  1. KEPPRA [Suspect]
     Indication: EPILEPSY
     Dosage: DAILY DOSE:3 G
     Route: 064
     Dates: start: 20111222
  2. LAMICTAL [Concomitant]
     Indication: EPILEPSY
     Dosage: DAILY DOSE:100 MG
     Route: 064
  3. SPECIAFOLDINE [Concomitant]
     Dosage: DAILY DOSE:5 MG
     Route: 064

REACTIONS (2)
  - Premature baby [Unknown]
  - Foetal exposure during pregnancy [Recovered/Resolved]
